FAERS Safety Report 8571279-X (Version None)
Quarter: 2012Q3

REPORT INFORMATION
  Report Type: 
  Country: None (occurrence: None)
  Receive Date: 20120806
  Receipt Date: 20120726
  Transmission Date: 20120928
  Serious: Yes (Hospitalization, Other)
  Sender: FDA-Public Use
  Company Number: JP-VERTEX PHARMACEUTICALS INC.-AE-2012-010816

PATIENT
  Age: 68 Year
  Sex: Female

DRUGS (13)
  1. TELAVIC (TELAPREVIR) [Suspect]
     Indication: HEPATITIS C
     Route: 048
     Dates: start: 20120607, end: 20120617
  2. PEGINTERFERON ALFA-2B [Concomitant]
     Route: 058
     Dates: start: 20120712, end: 20120718
  3. ALLOPURINOL [Concomitant]
     Route: 048
     Dates: start: 20120606, end: 20120724
  4. SALAGEN [Concomitant]
     Route: 048
  5. MOTILIUM [Concomitant]
     Route: 048
     Dates: start: 20120613
  6. AMLODIPINE [Concomitant]
     Route: 048
  7. REBETOL [Concomitant]
     Route: 048
     Dates: start: 20120705, end: 20120712
  8. CANDESARTAN CILEXETIL [Concomitant]
     Route: 048
  9. LANSOPRAZOLE [Concomitant]
     Route: 048
  10. REBETOL [Concomitant]
     Route: 048
     Dates: start: 20120712, end: 20120717
  11. TELAVIC (TELAPREVIR) [Suspect]
     Route: 048
     Dates: start: 20120618, end: 20120717
  12. REBETOL [Concomitant]
     Indication: HEPATITIS C
     Route: 048
     Dates: start: 20120607, end: 20120705
  13. PEGINTERFERON ALFA-2B [Concomitant]
     Route: 058
     Dates: start: 20120607, end: 20120712

REACTIONS (2)
  - ANAEMIA [None]
  - ASCITES [None]
